FAERS Safety Report 7725550-1 (Version None)
Quarter: 2011Q3

REPORT INFORMATION
  Report Type: 
  Country: None (occurrence: None)
  Receive Date: 20110902
  Receipt Date: 20110823
  Transmission Date: 20111222
  Serious: Yes (Hospitalization)
  Sender: FDA-Public Use
  Company Number: US-NOVOPROD-334090

PATIENT
  Age: 53 Year
  Sex: Male
  Weight: 87.075 kg

DRUGS (2)
  1. VICTOZA [Suspect]
     Indication: TYPE 2 DIABETES MELLITUS
     Dosage: 1.8 MG, QD
     Route: 058
  2. LISINOPRIL [Concomitant]
     Indication: PROPHYLAXIS
     Dosage: UNKNOWN

REACTIONS (1)
  - PANCREATITIS [None]
